FAERS Safety Report 7973722-3 (Version None)
Quarter: 2011Q4

REPORT INFORMATION
  Report Type: 
  Country: None (occurrence: None)
  Receive Date: 20111213
  Receipt Date: 20111213
  Transmission Date: 20120403
  Serious: Yes (Death)
  Sender: FDA-Public Use
  Company Number: None

PATIENT
  Age: 11 Month
  Sex: Female
  Weight: 8 kg

DRUGS (1)
  1. LINEZOLID [Suspect]
     Indication: ENTEROCOCCAL INFECTION
     Dosage: UNKNOWN
     Dates: start: 20110316, end: 20110329

REACTIONS (9)
  - ACUTE HEPATIC FAILURE [None]
  - MULTI-ORGAN FAILURE [None]
  - TOXICITY TO VARIOUS AGENTS [None]
  - FLUID OVERLOAD [None]
  - LACTIC ACIDOSIS [None]
  - ANURIA [None]
  - METABOLIC ACIDOSIS [None]
  - PULMONARY HAEMORRHAGE [None]
  - SHOCK [None]
